FAERS Safety Report 15742761 (Version 1)
Quarter: 2018Q4

REPORT INFORMATION
  Report Type: Spontaneous
  Country: IT (occurrence: IT)
  Receive Date: 20181219
  Receipt Date: 20181219
  Transmission Date: 20190205
  Serious: Yes (Life-Threatening)
  Sender: FDA-Public Use
  Company Number: IT-MYLANLABS-2018M1094568

PATIENT
  Age: 32 Year
  Sex: Male

DRUGS (1)
  1. PIPERACILLINA E TAZOBACTAM MYLAN GENERICS [Suspect]
     Active Substance: PIPERACILLIN SODIUM\TAZOBACTAM SODIUM
     Indication: PULMONARY TUBERCULOSIS
     Dosage: 1 DOSAGE FORM, TOTAL
     Route: 042
     Dates: start: 20180609, end: 20180609

REACTIONS (6)
  - Rash [Recovering/Resolving]
  - Headache [Recovering/Resolving]
  - Face oedema [Recovering/Resolving]
  - Tremor [Recovering/Resolving]
  - Pruritus [Recovering/Resolving]
  - Malaise [Recovering/Resolving]

NARRATIVE: CASE EVENT DATE: 20180609
